FAERS Safety Report 13637877 (Version 1)
Quarter: 2017Q2

REPORT INFORMATION
  Report Type: Report from Study
  Country: None (occurrence: US)
  Receive Date: 20170609
  Receipt Date: 20170609
  Transmission Date: 20170830
  Serious: Yes (Death)
  Sender: FDA-Public Use
  Company Number: US-ABBVIE-17P-163-1998420-00

PATIENT
  Age: 65 Year
  Sex: Male

DRUGS (1)
  1. VENCLEXTA [Suspect]
     Active Substance: VENETOCLAX
     Indication: PLASMA CELL MYELOMA
     Dosage: 600 MG BY MOUTH ONCE DAILY
     Route: 048
     Dates: start: 20170517

REACTIONS (1)
  - Death [Fatal]

NARRATIVE: CASE EVENT DATE: 20170605
